FAERS Safety Report 7793624-5 (Version None)
Quarter: 2011Q4

REPORT INFORMATION
  Report Type: 
  Country: None (occurrence: None)
  Receive Date: 20111003
  Receipt Date: 20110225
  Transmission Date: 20120403
  Serious: No
  Sender: FDA-Public Use
  Company Number: US-BAYER-2011-018350

PATIENT
  Sex: Male

DRUGS (9)
  1. DIGOXIN [Concomitant]
  2. VERAPAMIL [Concomitant]
  3. LEVITRA [Suspect]
     Indication: ERECTILE DYSFUNCTION
     Dosage: 20 MG, UNK
     Route: 048
     Dates: start: 20110201
  4. LISINOPRIL [Concomitant]
  5. HYDROCHLOROTHIAZIDE [Concomitant]
  6. LOVASTATIN [Concomitant]
  7. METFORMIN HCL [Concomitant]
  8. OMEPRAZOLE [Concomitant]
  9. ASPIRIN [Concomitant]

REACTIONS (2)
  - NAUSEA [None]
  - DIZZINESS [None]
